FAERS Safety Report 9982761 (Version 1)
Quarter: 2014Q1

REPORT INFORMATION
  Report Type: Report from Study
  Country: US (occurrence: US)
  Receive Date: 20140307
  Receipt Date: 20140307
  Transmission Date: 20141002
  Serious: No
  Sender: FDA-Public Use
  Company Number: US-ABBVIE-13P-163-1177497-00

PATIENT
  Age: 28 Year
  Sex: Female

DRUGS (6)
  1. HUMIRA [Suspect]
     Indication: CROHN^S DISEASE
     Dosage: DAY 1: FOUR 40 MG INJECTIONS
     Route: 058
     Dates: start: 20131106
  2. HUMIRA [Suspect]
     Dosage: DAY 15: TWO 40 MG INJECTIONS
     Route: 058
  3. HUMIRA [Suspect]
     Route: 058
  4. DEXILANT [Concomitant]
     Indication: GASTROOESOPHAGEAL REFLUX DISEASE
     Route: 048
  5. BIRTH CONTROL PILL [Concomitant]
     Indication: PRODUCT USED FOR UNKNOWN INDICATION
     Route: 048
  6. IRON SUPPLEMENT [Concomitant]
     Indication: ANAEMIA
     Route: 048

REACTIONS (1)
  - Headache [Recovered/Resolved]
